FAERS Safety Report 21117658 (Version 2)
Quarter: 2022Q3

REPORT INFORMATION
  Report Type: Spontaneous
  Country: GB (occurrence: GB)
  Receive Date: 20220722
  Receipt Date: 20220729
  Transmission Date: 20221027
  Serious: Yes (Hospitalization)
  Sender: FDA-Public Use
  Company Number: GB-002147023-NVSC2022GB156293

PATIENT
  Sex: Female

DRUGS (3)
  1. MYCOPHENOLATE SODIUM [Suspect]
     Active Substance: MYCOPHENOLATE SODIUM
     Indication: Product used for unknown indication
     Dosage: BID, FORM STRENGTH 500 MG, FREQUENCY-2, FREQUENCY TIME-1 DAY
     Route: 065
  2. PREDNISOLONE [Suspect]
     Active Substance: PREDNISOLONE
     Indication: Product used for unknown indication
     Dosage: BID, FORM STRENGTH 5 MG, FREQUENCY-2, FREQUENCY TIME-1 DAY
     Route: 065
  3. TACROLIMUS [Suspect]
     Active Substance: TACROLIMUS
     Indication: Product used for unknown indication
     Dosage: BID, FORM STRENGTH 6 MG, FREQUENCY-2, FREQUENCY TIME-1 DAY
     Route: 065

REACTIONS (1)
  - COVID-19 [Unknown]
